FAERS Safety Report 6862023-2 (Version None)
Quarter: 2010Q3

REPORT INFORMATION
  Report Type: 
  Country: None (occurrence: None)
  Receive Date: 20100721
  Receipt Date: 20100708
  Transmission Date: 20110219
  Serious: Yes (Hospitalization, Other)
  Sender: FDA-Public Use
  Company Number: PHFR2010GB01072

PATIENT
  Sex: Male

DRUGS (4)
  1. CLOZARIL [Suspect]
     Indication: SCHIZOPHRENIA
     Dosage: 75MG AM AND 150MG PM
     Route: 048
     Dates: start: 20090909, end: 20100618
  2. OLANZAPINE [Concomitant]
     Indication: SCHIZOPHRENIA
     Dosage: 5MG/DAY
     Route: 048
     Dates: start: 20081001
  3. FLUOXETINE HCL [Concomitant]
  4. AMLODIPINE [Concomitant]
     Dosage: UNK

REACTIONS (12)
  - ASTHENIA [None]
  - BLOOD CREATINE PHOSPHOKINASE INCREASED [None]
  - BLOOD PRESSURE INCREASED [None]
  - CELLULITIS [None]
  - DEHYDRATION [None]
  - GENERAL PHYSICAL HEALTH DETERIORATION [None]
  - HEART RATE INCREASED [None]
  - OEDEMA PERIPHERAL [None]
  - POLLAKIURIA [None]
  - SOCIAL AVOIDANT BEHAVIOUR [None]
  - TACHYCARDIA [None]
  - URINARY INCONTINENCE [None]
